FAERS Safety Report 20052508 (Version 1)
Quarter: 2021Q4

REPORT INFORMATION
  Report Type: Spontaneous
  Country: AT (occurrence: AT)
  Receive Date: 20211110
  Receipt Date: 20211110
  Transmission Date: 20220304
  Serious: Yes (Other)
  Sender: FDA-Public Use
  Company Number: AT-009507513-2111AUT002751

PATIENT
  Age: 70 Year
  Sex: Male

DRUGS (1)
  1. PEMBROLIZUMAB [Suspect]
     Active Substance: PEMBROLIZUMAB
     Indication: Squamous cell carcinoma of the hypopharynx
     Dosage: UNK
     Dates: start: 201809

REACTIONS (3)
  - Tumour pseudoprogression [Unknown]
  - Fatigue [Unknown]
  - Pruritus [Unknown]

NARRATIVE: CASE EVENT DATE: 20181201
